FAERS Safety Report 8822643 (Version 3)
Quarter: 2012Q4

REPORT INFORMATION
  Report Type: 
  Country: US (occurrence: US)
  Receive Date: 20121003
  Receipt Date: 20121224
  Transmission Date: 20130627
  Serious: No
  Sender: FDA-Public Use
  Company Number: US-ASTRAZENECA-2012SE74289

PATIENT
  Age: 72 Year
  Sex: Female

DRUGS (1)
  1. SYMBICORT PMDI [Suspect]
     Dosage: 160/4.5ug daily
     Route: 055

REACTIONS (4)
  - Dyspnoea [Unknown]
  - Adverse event [Unknown]
  - Intentional drug misuse [Unknown]
  - Drug dose omission [Unknown]
